FAERS Safety Report 6140183-9 (Version None)
Quarter: 2009Q2

REPORT INFORMATION
  Report Type: 
  Country: None (occurrence: None)
  Receive Date: 20090401
  Receipt Date: 20080527
  Transmission Date: 20091009
  Serious: Yes (Other)
  Sender: FDA-Public Use
  Company Number: GB-NOVOPROD-285645

PATIENT
  Age: 2 Year
  Sex: Male
  Weight: 15.2 kg

DRUGS (3)
  1. NOVOSEVEN [Suspect]
     Indication: FACTOR VII DEFICIENCY
     Dosage: 58 UG/KG, UNK
     Route: 042
  2. NOVOSEVEN [Suspect]
     Dosage: 13 UNK, UNK
     Route: 042
  3. NOVOSEVEN [Suspect]
     Dosage: 17 UG/KG, UNK

REACTIONS (2)
  - CATHETER SEPSIS [None]
  - MESENTERIC VEIN THROMBOSIS [None]
